FAERS Safety Report 5092321-7 (Version None)
Quarter: 2006Q3

REPORT INFORMATION
  Report Type: 
  Country: None (occurrence: None)
  Receive Date: 20060825
  Receipt Date: 20060815
  Transmission Date: 20061208
  Serious: Yes (Other)
  Sender: FDA-Public Use
  Company Number: HQWYE111319APR05

PATIENT
  Age: 64 Year
  Sex: Female
  Weight: 70.37 kg

DRUGS (5)
  1. PREMPRO [Suspect]
  2. ESTROGENIC SUBSTANCE [Suspect]
  3. MEDROXYPROGESTERONE [Suspect]
  4. PREMARIN [Suspect]
  5. PROVERA [Suspect]

REACTIONS (6)
  - BREAST CANCER FEMALE [None]
  - HAEMATOCHEZIA [None]
  - NON-SMALL CELL LUNG CANCER METASTATIC [None]
  - OESTROGEN RECEPTOR ASSAY POSITIVE [None]
  - PROGESTERONE RECEPTOR ASSAY POSITIVE [None]
  - ROSAI-DORFMAN SYNDROME [None]
